FAERS Safety Report 10371906 (Version 1)
Quarter: 2014Q3

REPORT INFORMATION
  Report Type: Report from Study
  Country: IT (occurrence: IT)
  Receive Date: 20140808
  Receipt Date: 20140808
  Transmission Date: 20150326
  Serious: Yes (Life-Threatening, Hospitalization)
  Sender: FDA-Public Use
  Company Number: IT-GLAXOSMITHKLINE-B1021771A

PATIENT
  Age: 69 Year
  Sex: Male

DRUGS (8)
  1. BRUFEN [Concomitant]
     Active Substance: IBUPROFEN
     Dosage: 400MG THREE TIMES PER DAY
     Route: 048
  2. ANTRA [Concomitant]
     Active Substance: OMEPRAZOLE
     Dosage: 40MG PER DAY
     Route: 048
  3. DEPAKIN [Concomitant]
     Active Substance: VALPROATE SODIUM
     Indication: CONVULSION
     Dosage: 500MG TWICE PER DAY
     Route: 048
  4. LYRICA [Concomitant]
     Active Substance: PREGABALIN
     Indication: CONVULSION
     Dosage: 150MG TWICE PER DAY
     Route: 048
  5. MEDROL [Concomitant]
     Active Substance: METHYLPREDNISOLONE
     Dosage: 4MG PER DAY
     Route: 048
  6. TARGIN [Concomitant]
     Active Substance: NALOXONE HYDROCHLORIDE\OXYCODONE HYDROCHLORIDE
     Indication: ANALGESIC THERAPY
     Dosage: 15MG TWICE PER DAY
     Route: 048
  7. DABRAFENIB [Suspect]
     Active Substance: DABRAFENIB
     Indication: METASTATIC MALIGNANT MELANOMA
     Dosage: 300MG PER DAY
     Dates: start: 20120808, end: 20140503
  8. DEURSIL [Concomitant]
     Active Substance: URSODIOL
     Dosage: 450MG PER DAY
     Route: 048

REACTIONS (1)
  - Intestinal obstruction [Recovered/Resolved]

NARRATIVE: CASE EVENT DATE: 201310
